FAERS Safety Report 22064329 (Version 1)
Quarter: 2023Q1

REPORT INFORMATION
  Report Type: Spontaneous
  Country: US (occurrence: None)
  Receive Date: 20230303
  Receipt Date: 20230303
  Transmission Date: 20230418
  Serious: Yes (Other)
  Sender: FDA-Public Use
  Company Number: None

PATIENT
  Age: 27 Year
  Sex: Male
  Weight: 60.75 kg

DRUGS (3)
  1. METHYLPHENIDATE [Suspect]
     Active Substance: METHYLPHENIDATE
     Indication: Attention deficit hyperactivity disorder
     Dosage: OTHER QUANTITY : 90 TABLET(S);?FREQUENCY : DAILY;?
     Route: 048
     Dates: start: 20230220, end: 20230224
  2. GUANFACINE [Concomitant]
     Active Substance: GUANFACINE
  3. ESCITALOPRAM OXALATE [Concomitant]
     Active Substance: ESCITALOPRAM OXALATE

REACTIONS (8)
  - Drug ineffective [None]
  - Increased appetite [None]
  - Irritability [None]
  - Anger [None]
  - Anxiety [None]
  - Nightmare [None]
  - Panic attack [None]
  - Initial insomnia [None]

NARRATIVE: CASE EVENT DATE: 20230220
